FAERS Safety Report 7233203-1 (Version None)
Quarter: 2011Q1

REPORT INFORMATION
  Report Type: 
  Country: None (occurrence: None)
  Receive Date: 20110119
  Receipt Date: 20110103
  Transmission Date: 20110831
  Serious: Yes (Hospitalization, Congenital Anomaly)
  Sender: FDA-Public Use
  Company Number: A0906654A

PATIENT
  Sex: Male

DRUGS (1)
  1. PAXIL [Suspect]

REACTIONS (4)
  - VENTRICULAR HYPOPLASIA [None]
  - DRUG EXPOSURE DURING PREGNANCY [None]
  - CONGENITAL CARDIOVASCULAR ANOMALY [None]
  - PATENT DUCTUS ARTERIOSUS [None]
